FAERS Safety Report 8349760-8 (Version None)
Quarter: 2012Q2

REPORT INFORMATION
  Report Type: 
  Country: None (occurrence: None)
  Receive Date: 20120510
  Receipt Date: 20120503
  Transmission Date: 20120825
  Serious: Yes (Hospitalization)
  Sender: FDA-Public Use
  Company Number: US-BAYER-2011-111057

PATIENT
  Age: 35 Year
  Sex: Female
  Weight: 56.236 kg

DRUGS (4)
  1. PHENERGAN [Concomitant]
  2. PREVACID [Concomitant]
  3. YAZ [Suspect]
     Indication: PREMENSTRUAL SYNDROME
     Dosage: UNK
     Route: 048
     Dates: start: 20070501, end: 20071201
  4. RED BLOOD CELLS [Concomitant]
     Indication: IRON DEFICIENCY ANAEMIA

REACTIONS (9)
  - BILE DUCT STONE [None]
  - CHOLECYSTITIS CHRONIC [None]
  - EMOTIONAL DISTRESS [None]
  - INJURY [None]
  - PAIN [None]
  - GENERAL PHYSICAL HEALTH DETERIORATION [None]
  - GALLBLADDER INJURY [None]
  - SCAR [None]
  - ANXIETY [None]
